FAERS Safety Report 20535216 (Version 3)
Quarter: 2022Q2

REPORT INFORMATION
  Report Type: Spontaneous
  Country: FR (occurrence: FR)
  Receive Date: 20220302
  Receipt Date: 20220525
  Transmission Date: 20220721
  Serious: Yes (Hospitalization)
  Sender: FDA-Public Use
  Company Number: None

PATIENT
  Age: 64 Year
  Sex: Female

DRUGS (10)
  1. TRAMADOL [Suspect]
     Active Substance: TRAMADOL
     Indication: Pain
     Dosage: 200 MILLIGRAM DAILY; TRAMADOL BASE,200 MILLIGRAM, QD,THERAPY START DATE ASKU
     Route: 048
  2. LANSOPRAZOLE [Suspect]
     Active Substance: LANSOPRAZOLE
     Indication: Product used for unknown indication
     Dosage: 15 MILLIGRAM DAILY; 15 MILLIGRAM, QD, THERAPY START DATE ASKU
     Route: 048
  3. ACETAMINOPHEN [Suspect]
     Active Substance: ACETAMINOPHEN
     Indication: Pain
     Dosage: 1 GRAM DAILY; 1 GRAM, QD ,THERAPY START DATE ASKU
     Route: 048
  4. ALPRAZOLAM [Suspect]
     Active Substance: ALPRAZOLAM
     Indication: Anxiety
     Dosage: .25 MILLIGRAM DAILY; 0.25 MILLIGRAM, QD , THERAPY START DATE ASKU
     Route: 048
  5. FUROSEMIDE [Suspect]
     Active Substance: FUROSEMIDE
     Indication: Electrolyte depletion
     Dosage: 20 MILLIGRAM DAILY; 20 MILLIGRAM, QD, THERAPY START DATE ASKU
     Route: 048
  6. PREDNISOLONE [Suspect]
     Active Substance: PREDNISOLONE
     Indication: Superior vena cava syndrome
     Dosage: 5 MILLIGRAM DAILY; 5 MILLIGRAM, QD ,THERAPY START DATE ASKU, THERAPY END DATE ASKU
     Route: 048
  7. OSIMERTINIB MESYLATE [Suspect]
     Active Substance: OSIMERTINIB MESYLATE
     Indication: Lung adenocarcinoma
     Dosage: 80 MILLIGRAM DAILY; 80 MILLIGRAM, QD , DURATION : 83 DAYS , OSIMERTINIB (MESYLATE DE)
     Route: 048
     Dates: start: 20211104, end: 20220126
  8. MOVICOL [Suspect]
     Active Substance: POLYETHYLENE GLYCOL 3350\POTASSIUM CHLORIDE\SODIUM BICARBONATE\SODIUM CHLORIDE
     Indication: Constipation
     Dosage: START DATE ASKU , UNK UNK, QD ,
     Route: 048
  9. TINZAPARIN SODIUM [Suspect]
     Active Substance: TINZAPARIN SODIUM
     Indication: Superior vena cava syndrome
     Dosage: 12000 IU (INTERNATIONAL UNIT) DAILY; TINZAPARIN SODIUM ((MAMMALS/PIGS/INTESTINAL MUCOSA)),
     Route: 058
  10. FOLIC ACID [Suspect]
     Active Substance: FOLIC ACID
     Indication: Vitamin supplementation
     Dosage: 10 MILLIGRAM DAILY; 10 MILLIGRAM, QD, ACIDE FOLIQUE , THERAPY START DATE ASKU,
     Route: 048

REACTIONS (1)
  - Interstitial lung disease [Recovering/Resolving]

NARRATIVE: CASE EVENT DATE: 20220126
